FAERS Safety Report 8639756 (Version 7)
Quarter: 2012Q4

REPORT INFORMATION
  Report Type: 
  Country: US (occurrence: US)
  Receive Date: 20120628
  Receipt Date: 20121214
  Transmission Date: 20130627
  Serious: Yes (Hospitalization)
  Sender: FDA-Public Use
  Company Number: US-BIOGENIDEC-2012BI022227

PATIENT
  Age: 71 Year
  Sex: Female

DRUGS (1)
  1. TYSABRI [Suspect]
     Indication: MULTIPLE SCLEROSIS
     Route: 042
     Dates: start: 20110829, end: 20120313

REACTIONS (4)
  - Wound infection bacterial [Recovered/Resolved]
  - Pneumonia [Recovered/Resolved]
  - Bacterial sepsis [Recovered/Resolved]
  - Malaise [Recovered/Resolved]
